FAERS Safety Report 8359494-1 (Version None)
Quarter: 2012Q2

REPORT INFORMATION
  Report Type: 
  Country: None (occurrence: None)
  Receive Date: 20120515
  Receipt Date: 20120430
  Transmission Date: 20120825
  Serious: Yes (Hospitalization)
  Sender: FDA-Public Use
  Company Number: IE-US-EMD SERONO, INC.-7118830

PATIENT
  Sex: Female

DRUGS (1)
  1. REBIF [Suspect]
     Indication: RELAPSING-REMITTING MULTIPLE SCLEROSIS
     Route: 058
     Dates: start: 20110304

REACTIONS (11)
  - MUSCULAR WEAKNESS [None]
  - DYSARTHRIA [None]
  - MUSCLE SPASMS [None]
  - COORDINATION ABNORMAL [None]
  - BALANCE DISORDER [None]
  - MYALGIA [None]
  - BLEPHAROSPASM [None]
  - MUSCULOSKELETAL PAIN [None]
  - FATIGUE [None]
  - MOBILITY DECREASED [None]
  - NASOPHARYNGITIS [None]
